FAERS Safety Report 12726704 (Version 1)
Quarter: 2016Q3

REPORT INFORMATION
  Report Type: Report from Study
  Country: US (occurrence: US)
  Receive Date: 20160908
  Receipt Date: 20160908
  Transmission Date: 20161109
  Serious: Yes (Death)
  Sender: FDA-Public Use
  Company Number: US-EXELIXIS-CABO-16007022

PATIENT
  Age: 57 Year
  Sex: Male

DRUGS (16)
  1. PROMETHAZINE [Concomitant]
     Active Substance: PROMETHAZINE\PROMETHAZINE HYDROCHLORIDE
  2. CABOMETYX [Suspect]
     Active Substance: CABOZANTINIB S-MALATE
     Indication: RENAL CELL CARCINOMA
     Dosage: 60 MG, QD
     Route: 048
     Dates: start: 20160610, end: 20160715
  3. GLIPIZIDE. [Concomitant]
     Active Substance: GLIPIZIDE
  4. MIRALAX [Concomitant]
     Active Substance: POLYETHYLENE GLYCOL 3350
  5. ZYRTEC [Concomitant]
     Active Substance: CETIRIZINE HYDROCHLORIDE
  6. MORPHINE SULFATE. [Concomitant]
     Active Substance: MORPHINE SULFATE
  7. HYZAAR [Concomitant]
     Active Substance: HYDROCHLOROTHIAZIDE\LOSARTAN POTASSIUM
  8. LACTULOSE. [Concomitant]
     Active Substance: LACTULOSE
  9. LORAZEPAM. [Concomitant]
     Active Substance: LORAZEPAM
  10. METOPROLOL. [Concomitant]
     Active Substance: METOPROLOL
  11. HYDROCODONE [Concomitant]
     Active Substance: HYDROCODONE
  12. NORVASC [Concomitant]
     Active Substance: AMLODIPINE BESYLATE
  13. SINGULAIR [Concomitant]
     Active Substance: MONTELUKAST SODIUM
  14. FUROSEMIDE. [Concomitant]
     Active Substance: FUROSEMIDE
  15. ONDANSETRON [Concomitant]
     Active Substance: ONDANSETRON
  16. VITAMIN C [Concomitant]
     Active Substance: ASCORBIC ACID

REACTIONS (1)
  - Death [Fatal]

NARRATIVE: CASE EVENT DATE: 20160723
